FAERS Safety Report 10417040 (Version 2)
Quarter: 2014Q4

REPORT INFORMATION
  Report Type: Spontaneous
  Country: JP (occurrence: None)
  Receive Date: 20140826
  Receipt Date: 20141015
  Transmission Date: 20150528
  Serious: Yes (Hospitalization)
  Sender: FDA-Public Use
  Company Number: B1016629A

PATIENT
  Age: 58 Year
  Sex: Female
  Weight: 79.2 kg

DRUGS (9)
  1. PAROXETINE HYDROCHLORIDE. [Suspect]
     Active Substance: PAROXETINE HYDROCHLORIDE
     Indication: SOCIAL PHOBIA
     Dosage: 5 MG / PER DAY / ORAL
     Route: 048
     Dates: start: 20130722, end: 20140619
  2. ROXATIDINE [Concomitant]
     Active Substance: ROXATIDINE
  3. PAROXETINE HYDROCHLORIDE TABLET (PAROXETINE HYDROCHLORIDE) [Suspect]
     Active Substance: PAROXETINE HYDROCHLORIDE
     Indication: SOCIAL PHOBIA
     Dosage: 10 MG / PER DAY / ORAL
     Route: 048
     Dates: start: 20140619, end: 20140626
  4. LACTOBACILLUS BIFIDUS [Concomitant]
  5. NON-GSK PROPRANOLOL HCL [Concomitant]
  6. AMLODIPINE [Concomitant]
     Active Substance: AMLODIPINE BESYLATE
  7. BISOLVON [Concomitant]
     Active Substance: BROMHEXINE HYDROCHLORIDE
  8. ETIZOLAM [Concomitant]
     Active Substance: ETIZOLAM
  9. DIGOXIN. [Concomitant]
     Active Substance: DIGOXIN

REACTIONS (8)
  - Dyspnoea [None]
  - Nausea [None]
  - Hypoxia [None]
  - Decreased appetite [None]
  - Palpitations [None]
  - Inappropriate antidiuretic hormone secretion [None]
  - Malaise [None]
  - Vomiting [None]

NARRATIVE: CASE EVENT DATE: 20140609
